FAERS Safety Report 4828963-0 (Version None)
Quarter: 2005Q4

REPORT INFORMATION
  Report Type: 
  Country: None (occurrence: None)
  Receive Date: 20051014
  Receipt Date: 20050824
  Transmission Date: 20060501
  Serious: No
  Sender: FDA-Public Use
  Company Number: 2005SP002498

PATIENT
  Age: 86 Year
  Sex: Male

DRUGS (8)
  1. LUNESTA [Suspect]
     Dosage: 1 MG;HS;ORAL, 2 MG;HS;ORAL, 3 MG;HS;ORAL
     Route: 048
     Dates: start: 20050823, end: 20050823
  2. LUNESTA [Suspect]
     Dosage: 1 MG;HS;ORAL, 2 MG;HS;ORAL, 3 MG;HS;ORAL
     Route: 048
     Dates: start: 20050824, end: 20050824
  3. LUNESTA [Suspect]
     Dosage: 1 MG;HS;ORAL, 2 MG;HS;ORAL, 3 MG;HS;ORAL
     Route: 048
     Dates: start: 20050825
  4. GLYBURIDE [Concomitant]
  5. ACTOS [Concomitant]
  6. ZOCOR [Concomitant]
  7. COLACE [Concomitant]
  8. DIURETICS [Concomitant]

REACTIONS (2)
  - DRUG INEFFECTIVE [None]
  - INSOMNIA [None]
